FAERS Safety Report 10836739 (Version 1)
Quarter: 2015Q1

REPORT INFORMATION
  Report Type: Report from Study
  Country: US (occurrence: US)
  Receive Date: 20150219
  Receipt Date: 20150219
  Transmission Date: 20150721
  Serious: No
  Sender: FDA-Public Use
  Company Number: US-ABBVIE-14P-163-1213449-00

PATIENT
  Age: 54 Year
  Sex: Male

DRUGS (4)
  1. UNKNOWN MEDICATION [Concomitant]
     Active Substance: UNSPECIFIED INGREDIENT
     Indication: CROHN^S DISEASE
  2. UNKNOWN MEDICATION [Concomitant]
     Active Substance: UNSPECIFIED INGREDIENT
     Indication: DIARRHOEA
  3. BABY ASPIRIN [Concomitant]
     Active Substance: ASPIRIN
     Indication: PRODUCT USED FOR UNKNOWN INDICATION
  4. HUMIRA [Suspect]
     Active Substance: ADALIMUMAB
     Indication: CROHN^S DISEASE
     Dates: start: 20121031

REACTIONS (3)
  - Dysphonia [Not Recovered/Not Resolved]
  - Tooth infection [Not Recovered/Not Resolved]
  - Tooth fracture [Not Recovered/Not Resolved]

NARRATIVE: CASE EVENT DATE: 20121031
